FAERS Safety Report 13656818 (Version 1)
Quarter: 2017Q2

REPORT INFORMATION
  Report Type: Spontaneous
  Country: DE (occurrence: DE)
  Receive Date: 20170615
  Receipt Date: 20170615
  Transmission Date: 20170830
  Serious: No
  Sender: FDA-Public Use
  Company Number: DE-ALLERGAN-1704268US

PATIENT
  Sex: Male

DRUGS (2)
  1. KENTERA 3.9MG/24 HOURS TRANSDERMAL PATCH [Suspect]
     Active Substance: OXYBUTYNIN
     Indication: MICTURITION URGENCY
     Dosage: UNK
     Route: 062
     Dates: start: 20160901
  2. TRIMIPRAMINE [Concomitant]
     Active Substance: TRIMIPRAMINE
     Indication: INSOMNIA

REACTIONS (2)
  - Vision blurred [Unknown]
  - Visual impairment [Unknown]
